FAERS Safety Report 7879762-7 (Version None)
Quarter: 2011Q4

REPORT INFORMATION
  Report Type: 
  Country: None (occurrence: None)
  Receive Date: 20111101
  Receipt Date: 20111026
  Transmission Date: 20120403
  Serious: Yes (Hospitalization)
  Sender: FDA-Public Use
  Company Number: VE-ELI_LILLY_AND_COMPANY-VE201110007886

PATIENT
  Age: 37 Year
  Sex: Male

DRUGS (3)
  1. HUMALOG [Suspect]
     Dosage: 12 IU, EACH MORNING
  2. HUMALOG MIX 75/25 [Suspect]
     Dosage: 20 IU, EACH EVENING
  3. HUMALOG [Suspect]
     Dosage: 10 IU, OTHER

REACTIONS (4)
  - HYPERHIDROSIS [None]
  - DIABETES MELLITUS INADEQUATE CONTROL [None]
  - HYPOGLYCAEMIA [None]
  - TREMOR [None]
